FAERS Safety Report 20587477 (Version 2)
Quarter: 2022Q1

REPORT INFORMATION
  Report Type: Spontaneous
  Country: IT (occurrence: IT)
  Receive Date: 20220314
  Receipt Date: 20220328
  Transmission Date: 20220423
  Serious: Yes (Disabling, Other)
  Sender: FDA-Public Use
  Company Number: IT-Zentiva-2022-ZT-002239

PATIENT
  Age: 75 Year
  Sex: Female

DRUGS (1)
  1. RASAGILINE [Suspect]
     Active Substance: RASAGILINE
     Indication: Parkinson^s disease
     Dosage: 1 MILLIGRAM, ONCE A DAY
     Route: 048

REACTIONS (16)
  - Withdrawal syndrome [Recovering/Resolving]
  - Agitation [Recovering/Resolving]
  - Depression [Recovering/Resolving]
  - Anxiety [Recovering/Resolving]
  - Dysphoria [Recovering/Resolving]
  - Muscle rigidity [Recovering/Resolving]
  - Pain [Unknown]
  - Bradykinesia [Recovering/Resolving]
  - Balance disorder [Recovering/Resolving]
  - Resting tremor [Recovering/Resolving]
  - Dermatitis allergic [Unknown]
  - Amimia [Recovering/Resolving]
  - Hypertension [Unknown]
  - Nausea [Unknown]
  - Vomiting [Unknown]
  - Fatigue [Unknown]
